FAERS Safety Report 16085957 (Version 1)
Quarter: 2019Q1

REPORT INFORMATION
  Report Type: Spontaneous
  Country: DK (occurrence: DK)
  Receive Date: 20190318
  Receipt Date: 20190318
  Transmission Date: 20190418
  Serious: Yes (Hospitalization, Disabling)
  Sender: FDA-Public Use
  Company Number: DK-TEVA-2019-DK-1024526

PATIENT
  Age: 22 Year
  Sex: Female

DRUGS (1)
  1. PREDNISOLONE. [Suspect]
     Active Substance: PREDNISOLONE
     Indication: PNEUMONIA MYCOPLASMAL
     Dates: start: 20081120, end: 20090330

REACTIONS (4)
  - Hip arthroplasty [Recovered/Resolved]
  - Groin pain [Recovering/Resolving]
  - Arthralgia [Recovering/Resolving]
  - Osteonecrosis [Recovered/Resolved with Sequelae]

NARRATIVE: CASE EVENT DATE: 20121116
